FAERS Safety Report 4361032-5 (Version None)
Quarter: 2004Q2

REPORT INFORMATION
  Report Type: 
  Country: None (occurrence: None)
  Receive Date: 20040514
  Receipt Date: 20040427
  Transmission Date: 20050107
  Serious: Yes (Hospitalization)
  Sender: FDA-Public Use
  Company Number: 234499

PATIENT
  Weight: 3.6 kg

DRUGS (12)
  1. ACTRAPID PENFIL HM(GE) 3 ML (ACTRAPID PENFIL HM(GE) 3 ML) SOLUTION FOR [Suspect]
     Indication: DIABETES MELLITUS INSULIN-DEPENDENT
     Dosage: 50 IU, QD, INTRAUTERINE
     Route: 015
     Dates: start: 20030212, end: 20031213
  2. INSULATARD (INSULIN HUMAN) SUSPENSION FOR INJECTION, 100 IU/ML [Concomitant]
  3. PROSTINE (DINOPROSTONE) [Concomitant]
  4. ACTRAPID (INSULIN HUMAN) SOLUTION FOR INJECTION, 100 IU/ML [Concomitant]
  5. ENTONOX (NITROUS OXIDE, OXYGEN) [Concomitant]
  6. SYNTOCINON [Concomitant]
  7. CEFUROXIME [Concomitant]
  8. OXYTOCIN 10 USP UNITS IN DEXTROSE 5% [Concomitant]
  9. ALFENTANIL [Concomitant]
  10. LIDOCAINE [Concomitant]
  11. BUPIVACAINE [Concomitant]
  12. FENTANYL [Concomitant]

REACTIONS (6)
  - CAESAREAN SECTION [None]
  - HYPOGLYCAEMIA NEONATAL [None]
  - MATERNAL DRUGS AFFECTING FOETUS [None]
  - NEONATAL DISORDER [None]
  - RESPIRATORY DISORDER NEONATAL [None]
  - SKIN DISCOLOURATION [None]
